FAERS Safety Report 5252316-7 (Version None)
Quarter: 2007Q1

REPORT INFORMATION
  Report Type: 
  Country: None (occurrence: None)
  Receive Date: 20070301
  Receipt Date: 20060327
  Transmission Date: 20070707
  Serious: No
  Sender: FDA-Public Use
  Company Number: US-BRISTOL-MYERS SQUIBB COMPANY-13327952

PATIENT
  Sex: Female
  Weight: 77 kg

DRUGS (7)
  1. TAXOL [Suspect]
     Indication: ENDOMETRIAL CANCER
     Route: 042
     Dates: start: 20060117
  2. CARBOPLATIN [Suspect]
     Indication: ENDOMETRIAL CANCER
     Route: 042
     Dates: start: 20060117
  3. BENADRYL [Concomitant]
     Indication: PREMEDICATION
  4. LIPITOR [Concomitant]
  5. ASPIRIN [Concomitant]
  6. MULTI-VITAMIN [Concomitant]
  7. MAGNESIUM CITRATE [Concomitant]

REACTIONS (3)
  - ANAL FISSURE [None]
  - CONSTIPATION [None]
  - HAEMORRHOIDS [None]
